FAERS Safety Report 23139964 (Version 1)
Quarter: 2023Q4

REPORT INFORMATION
  Report Type: Spontaneous
  Country: GR (occurrence: GR)
  Receive Date: 20231102
  Receipt Date: 20231102
  Transmission Date: 20240110
  Serious: Yes (Hospitalization)
  Sender: FDA-Public Use
  Company Number: GR-TEVA-2023-GR-2941034

PATIENT
  Age: 74 Year
  Sex: Male
  Weight: 65 kg

DRUGS (9)
  1. MEXILETINE [Suspect]
     Active Substance: MEXILETINE
     Indication: Arrhythmia
     Dosage: 400 MILLIGRAM DAILY; 200 MG
     Route: 065
     Dates: start: 202310
  2. AMIODARONE HYDROCHLORIDE [Concomitant]
     Active Substance: AMIODARONE HYDROCHLORIDE
     Indication: Arrhythmia
     Route: 065
  3. SALUREX [Concomitant]
     Indication: Diuretic therapy
     Route: 065
  4. JARDIANCE [Concomitant]
     Active Substance: EMPAGLIFLOZIN
     Indication: Cardiac failure
     Route: 065
  5. ASSOPROL [Concomitant]
     Indication: Antacid therapy
  6. SINTROM [Concomitant]
     Active Substance: ACENOCOUMAROL
     Indication: Anticoagulant therapy
  7. EPLERENONE [Concomitant]
     Active Substance: EPLERENONE
     Indication: Cardiac failure
  8. BISOPROLOL FUMARATE [Concomitant]
     Active Substance: BISOPROLOL FUMARATE
     Indication: Cardiac failure
  9. OLMESARTAN MEDOXOMIL [Concomitant]
     Active Substance: OLMESARTAN MEDOXOMIL
     Indication: Blood pressure measurement

REACTIONS (1)
  - Abdominal pain upper [Unknown]

NARRATIVE: CASE EVENT DATE: 20231001
